FAERS Safety Report 5057218-7 (Version None)
Quarter: 2006Q3

REPORT INFORMATION
  Report Type: 
  Country: None (occurrence: None)
  Receive Date: 20060721
  Receipt Date: 20050615
  Transmission Date: 20061208
  Serious: No
  Sender: FDA-Public Use
  Company Number: US-GLAXOSMITHKLINE-A0562802A

PATIENT
  Age: 47 Year
  Sex: Female

DRUGS (7)
  1. AVANDIA [Suspect]
     Dosage: 12MG VARIABLE DOSE
     Route: 048
     Dates: start: 20050401
  2. GLIPIZIDE [Concomitant]
  3. METFORMIN [Concomitant]
  4. LIPITOR [Concomitant]
  5. TARKA [Concomitant]
  6. MULTI-VITAMIN [Concomitant]
  7. LEXAPRO [Concomitant]

REACTIONS (1)
  - DRUG INEFFECTIVE [None]
